FAERS Safety Report 5335959-1 (Version None)
Quarter: 2007Q2

REPORT INFORMATION
  Report Type: 
  Country: None (occurrence: None)
  Receive Date: 20070527
  Receipt Date: 20070521
  Transmission Date: 20071010
  Serious: Yes (Other)
  Sender: FDA-Public Use
  Company Number: GB-ALLERGAN-0705469US

PATIENT
  Sex: Male

DRUGS (3)
  1. ALPHAGAN[R] 0.2% [Suspect]
     Indication: OPEN ANGLE GLAUCOMA
     Dosage: UNK, UNK
     Route: 047
  2. DORZOLAMIDE [Suspect]
     Indication: OPEN ANGLE GLAUCOMA
     Dosage: UNK, UNK
     Route: 047
  3. LATANOPROST [Suspect]
     Indication: OPEN ANGLE GLAUCOMA
     Dosage: UNK, UNK
     Route: 047

REACTIONS (7)
  - CONJUNCTIVAL DISORDER [None]
  - CONJUNCTIVAL HYPERAEMIA [None]
  - CONJUNCTIVAL OEDEMA [None]
  - ECTROPION [None]
  - ERYTHEMA [None]
  - PERIORBITAL OEDEMA [None]
  - SKIN EXFOLIATION [None]
